FAERS Safety Report 4390742-9 (Version None)
Quarter: 2004Q3

REPORT INFORMATION
  Report Type: 
  Country: None (occurrence: None)
  Receive Date: 20040706
  Receipt Date: 20040706
  Transmission Date: 20050211
  Serious: Yes (Other)
  Sender: FDA-Public Use
  Company Number: None

PATIENT
  Age: 77 Year
  Sex: Female

DRUGS (15)
  1. SKELAXIN [Suspect]
     Dosage: 800 MG TID PO
     Route: 048
     Dates: start: 20040705
  2. BISACODYL [Concomitant]
  3. DOCUSATE [Concomitant]
  4. ARIXTRA [Concomitant]
  5. HYDROCHLOROTHIAZIDE [Concomitant]
  6. MAALOX [Concomitant]
  7. LISINOPRIL [Concomitant]
  8. POTASSIUM CHLORIDE [Concomitant]
  9. TYLENOL [Concomitant]
  10. PHENERGAN [Concomitant]
  11. AMBIEN [Concomitant]
  12. PEPTO BISMOL [Concomitant]
  13. MILK OF MAGNESIA TAB [Concomitant]
  14. DARVOCET-N 100 [Concomitant]
  15. GUAIFENESIN [Concomitant]

REACTIONS (1)
  - PRURITUS [None]
